FAERS Safety Report 8890327 (Version 2)
Quarter: 2015Q3

REPORT INFORMATION
  Report Type: Report from Study
  Country: DE (occurrence: DE)
  Receive Date: 20121106
  Receipt Date: 20150919
  Transmission Date: 20151125
  Serious: No
  Sender: FDA-Public Use
  Company Number: DE-009507513-1211DEU000003

PATIENT
  Age: 61 Year
  Sex: Male

DRUGS (9)
  1. SPIRONOLACTONE. [Concomitant]
     Active Substance: SPIRONOLACTONE
     Indication: HYPERTENSION
     Dosage: 25 MG, QD
     Route: 048
  2. PEGINTERFERON ALFA-2B [Suspect]
     Active Substance: PEGINTERFERON ALFA-2B
     Indication: HEPATITIS C
     Dosage: 120 MICROGRAM, QW
     Route: 058
     Dates: start: 20120914
  3. PANTOZOL [Concomitant]
     Active Substance: PANTOPRAZOLE SODIUM
     Indication: GASTRIC DISORDER
     Dosage: 40 MG, PRN
     Route: 048
  4. REBETOL [Suspect]
     Active Substance: RIBAVIRIN
     Indication: HEPATITIS C
     Dosage: 1200 MG, BID
     Route: 048
     Dates: start: 20120914
  5. JUFURIX [Concomitant]
     Indication: CORONARY ARTERY DISEASE
     Dosage: 40 MG, QD
     Route: 048
  6. METOHEXAL [Concomitant]
     Active Substance: METOPROLOL SUCCINATE
     Indication: HYPERTENSION
     Dosage: TOTAL DAILY DOSE: 142.5 MG, BID
     Route: 048
  7. SIMVASTATIN. [Concomitant]
     Active Substance: SIMVASTATIN
     Indication: BLOOD CHOLESTEROL
     Dosage: 5 MG, QD
     Route: 048
  8. RAMIPRIL. [Concomitant]
     Active Substance: RAMIPRIL
     Indication: CORONARY ARTERY DISEASE
     Dosage: 5 MG, QD
     Route: 048
  9. PHENPROCOUMON [Concomitant]
     Active Substance: PHENPROCOUMON
     Indication: CORONARY ARTERY DISEASE
     Dosage: 2 MG, PRN
     Route: 048

REACTIONS (1)
  - Neutropenia [Unknown]

NARRATIVE: CASE EVENT DATE: 20121012
